FAERS Safety Report 24060256 (Version 3)
Quarter: 2024Q3

REPORT INFORMATION
  Report Type: Report from Study
  Country: US (occurrence: US)
  Receive Date: 20240708
  Receipt Date: 20240827
  Transmission Date: 20241016
  Serious: Yes (Hospitalization, Other)
  Sender: BAYER
  Company Number: US-BAYER-2024A092110

PATIENT
  Age: 76 Year
  Sex: Female

DRUGS (7)
  1. STIVARGA [Suspect]
     Active Substance: REGORAFENIB MONOHYDRATE
     Indication: Rectal cancer
     Dosage: 160 MG, QD (FOR 21 DAYS, 7 DAYS OFF)
     Route: 048
  2. STIVARGA [Suspect]
     Active Substance: REGORAFENIB MONOHYDRATE
     Indication: Rectal cancer
     Dosage: 120 MG, QD
     Route: 048
  3. OXYCODONE [Suspect]
     Active Substance: OXYCODONE
     Indication: Lymph node pain
     Dosage: UNK
  4. OLANZAPINE [Suspect]
     Active Substance: OLANZAPINE
  5. GABAPENTIN [Suspect]
     Active Substance: GABAPENTIN
     Indication: Lymph node pain
     Dosage: UNK
  6. LINZESS [Concomitant]
     Active Substance: LINACLOTIDE
     Dosage: UNK
  7. ELIQUIS [Concomitant]
     Active Substance: APIXABAN
     Dosage: UNK

REACTIONS (24)
  - Renal disorder [Not Recovered/Not Resolved]
  - Urinary tract obstruction [Unknown]
  - Pulmonary thrombosis [Not Recovered/Not Resolved]
  - Fatigue [Not Recovered/Not Resolved]
  - Insomnia [Not Recovered/Not Resolved]
  - Lethargy [Not Recovered/Not Resolved]
  - Anxiety [Not Recovered/Not Resolved]
  - Blood pressure abnormal [Not Recovered/Not Resolved]
  - Atrophy [Not Recovered/Not Resolved]
  - Lymph node pain [Not Recovered/Not Resolved]
  - Nerve compression [Not Recovered/Not Resolved]
  - Neuralgia [Not Recovered/Not Resolved]
  - Glossitis [Not Recovered/Not Resolved]
  - Dysphonia [Not Recovered/Not Resolved]
  - Inappropriate schedule of product administration [None]
  - Drug interaction [Not Recovered/Not Resolved]
  - Mobility decreased [Not Recovered/Not Resolved]
  - Peroneal nerve palsy [Not Recovered/Not Resolved]
  - Abdominal pain upper [Recovered/Resolved]
  - Skin lesion [Recovered/Resolved]
  - Diarrhoea [Not Recovered/Not Resolved]
  - Nausea [Not Recovered/Not Resolved]
  - Constipation [Not Recovered/Not Resolved]
  - Pain in extremity [Not Recovered/Not Resolved]

NARRATIVE: CASE EVENT DATE: 20231001
